FAERS Safety Report 23959453 (Version 1)
Quarter: 2024Q2

REPORT INFORMATION
  Report Type: Spontaneous
  Country: IT (occurrence: IT)
  Receive Date: 20240611
  Receipt Date: 20240611
  Transmission Date: 20240716
  Serious: Yes (Other)
  Sender: FDA-Public Use
  Company Number: None

PATIENT
  Age: 71 Year
  Sex: Female

DRUGS (5)
  1. VECTIBIX [Suspect]
     Active Substance: PANITUMUMAB
     Indication: Colon cancer
     Dosage: 306 MILLIGRAM
     Route: 040
     Dates: start: 20230406, end: 20230406
  2. FLUOROURACIL [Suspect]
     Active Substance: FLUOROURACIL
     Indication: Colon cancer
     Dosage: 2486 MILLIGRAM
     Route: 040
     Dates: start: 20230406, end: 20230406
  3. FLUOROURACIL [Suspect]
     Active Substance: FLUOROURACIL
     Dosage: 414 MILLIGRAM
     Route: 040
     Dates: start: 20230406, end: 20230406
  4. IRINOTECAN [Suspect]
     Active Substance: IRINOTECAN
     Indication: Colon cancer
     Dosage: 186 MILLIGRAM
     Route: 042
     Dates: start: 20230406, end: 20230406
  5. LEVOFOLIC [Concomitant]
     Indication: Product used for unknown indication
     Dosage: 207 MILLIGRAM
     Route: 040

REACTIONS (1)
  - Neutropenia [Recovering/Resolving]

NARRATIVE: CASE EVENT DATE: 20230426
